FAERS Safety Report 16724830 (Version 1)
Quarter: 2019Q3

REPORT INFORMATION
  Report Type: Spontaneous
  Country: ES (occurrence: ES)
  Receive Date: 20190821
  Receipt Date: 20190821
  Transmission Date: 20191005
  Serious: Yes (Hospitalization)
  Sender: FDA-Public Use
  Company Number: ES-SA-2019SA225433

PATIENT
  Age: 87 Year
  Sex: Female

DRUGS (1)
  1. LANTUS [Suspect]
     Active Substance: INSULIN GLARGINE
     Dosage: UNK UNK, UNK
     Route: 065
     Dates: start: 201907

REACTIONS (5)
  - Hypertension [Unknown]
  - Hypoglycaemia [Unknown]
  - Disorientation [Unknown]
  - Medication error [Unknown]
  - Tachycardia [Unknown]

NARRATIVE: CASE EVENT DATE: 201907
